FAERS Safety Report 21237911 (Version 1)
Quarter: 2022Q3

REPORT INFORMATION
  Report Type: Spontaneous
  Country: TR (occurrence: TR)
  Receive Date: 20220822
  Receipt Date: 20220822
  Transmission Date: 20221026
  Serious: Yes (Hospitalization, Other)
  Sender: FDA-Public Use
  Company Number: TR-MLMSERVICE-20220803-3714970-1

PATIENT
  Age: 69 Year
  Sex: Female

DRUGS (6)
  1. AMLODIPINE [Suspect]
     Active Substance: AMLODIPINE BESYLATE
     Indication: Hypertension
  2. DEXTROSE [Concomitant]
     Active Substance: DEXTROSE
     Dosage: STRENGTH: 20%
  3. INSULIN NOS [Suspect]
     Active Substance: INSULIN NOS
     Indication: Diabetes mellitus
     Dosage: SHORT-ACTING REGULAR, 18-20 UNITS
  4. HYDROCHLOROTHIAZIDE\LOSARTAN POTASSIUM [Suspect]
     Active Substance: HYDROCHLOROTHIAZIDE\LOSARTAN POTASSIUM
     Indication: Hypertension
     Dosage: STRENGTH: 100/25 MG
  5. INSULIN GLARGINE [Suspect]
     Active Substance: INSULIN GLARGINE
     Indication: Diabetes mellitus
  6. INSULIN NOS [Suspect]
     Active Substance: INSULIN NOS
     Indication: Diabetes mellitus
     Dosage: SHORT-ACTING REGULAR, 18-20 UNITS

REACTIONS (4)
  - Chorea [Recovering/Resolving]
  - Hypoglycaemia [Recovered/Resolved]
  - Ballismus [Recovering/Resolving]
  - Cerebral ischaemia [Recovering/Resolving]
